FAERS Safety Report 6616628-4 (Version None)
Quarter: 2010Q1

REPORT INFORMATION
  Report Type: 
  Country: None (occurrence: None)
  Receive Date: 20100305
  Receipt Date: 20100222
  Transmission Date: 20100710
  Serious: Yes (Other)
  Sender: FDA-Public Use
  Company Number: JP-PFIZER INC-2010025860

PATIENT
  Age: 80 Year
  Sex: Female

DRUGS (2)
  1. ZOLOFT [Suspect]
     Dosage: 50 MG/DAY
     Route: 048
     Dates: start: 20100101
  2. ANAFRANIL [Concomitant]
     Route: 042

REACTIONS (2)
  - DYSARTHRIA [None]
  - TARDIVE DYSKINESIA [None]
